FAERS Safety Report 23940506 (Version 1)
Quarter: 2024Q2

REPORT INFORMATION
  Report Type: Spontaneous
  Country: US (occurrence: US)
  Receive Date: 20240605
  Receipt Date: 20240605
  Transmission Date: 20240716
  Serious: No
  Sender: FDA-Public Use
  Company Number: US-BoehringerIngelheim-2024-BI-032035

PATIENT
  Age: 68 Year
  Sex: Male
  Weight: 95.2 kg

DRUGS (8)
  1. OFEV [Suspect]
     Active Substance: NINTEDANIB
     Indication: Product used for unknown indication
     Dosage: UNKNOWN
  2. TYVASO DPI [Suspect]
     Active Substance: TREPROSTINIL
     Indication: Pulmonary arterial hypertension
     Dates: start: 20240514
  3. TYVASO DPI [Suspect]
     Active Substance: TREPROSTINIL
     Dates: start: 202405
  4. CALCIUM [Concomitant]
     Active Substance: CALCIUM
     Indication: Product used for unknown indication
  5. MAGNESIUM [Concomitant]
     Active Substance: MAGNESIUM
     Indication: Product used for unknown indication
  6. LISINOPRIL [Concomitant]
     Active Substance: LISINOPRIL
     Indication: Product used for unknown indication
  7. OXYGEN [Concomitant]
     Active Substance: OXYGEN
     Indication: Product used for unknown indication
  8. VITAMINS [Concomitant]
     Active Substance: VITAMINS
     Indication: Product used for unknown indication

REACTIONS (2)
  - Diarrhoea [Recovering/Resolving]
  - Cough [Unknown]
